FAERS Safety Report 4393315-7 (Version None)
Quarter: 2004Q3

REPORT INFORMATION
  Report Type: 
  Country: None (occurrence: None)
  Receive Date: 20040701
  Receipt Date: 20040615
  Transmission Date: 20050211
  Serious: Yes (Hospitalization)
  Sender: FDA-Public Use
  Company Number: FR_040403872

PATIENT
  Age: 74 Year
  Sex: Female

DRUGS (8)
  1. PERGOLIDE MESYLATE [Suspect]
     Indication: PARKINSON'S DISEASE
  2. MODOPAR [Concomitant]
  3. TENORMINE (ATENOLOL MEPHA) [Concomitant]
  4. CORDARONE [Concomitant]
  5. LASIX [Concomitant]
  6. PREVISCAN (FLUINDIONE) [Concomitant]
  7. MANTADIX (AMANTADINE HYDROCHLORIDE) [Concomitant]
  8. APOKINON (APOMORPHINE HYDROCHLORIDE) [Concomitant]

REACTIONS (4)
  - ACUTE PULMONARY OEDEMA [None]
  - CARDIAC FAILURE [None]
  - CARDIAC VALVE DISEASE [None]
  - CONDITION AGGRAVATED [None]
